FAERS Safety Report 6107602-5 (Version None)
Quarter: 2009Q1

REPORT INFORMATION
  Report Type: 
  Country: None (occurrence: None)
  Receive Date: 20090309
  Receipt Date: 20090227
  Transmission Date: 20090719
  Serious: Yes (Death)
  Sender: FDA-Public Use
  Company Number: JP-ASTRAZENECA-2009AP01098

PATIENT
  Age: 23072 Day
  Sex: Male
  Weight: 48.8 kg

DRUGS (29)
  1. SEROQUEL [Suspect]
     Indication: RESTLESSNESS
     Route: 048
     Dates: start: 20081117, end: 20081120
  2. SEROQUEL [Suspect]
     Indication: SOMATOFORM DISORDER
     Route: 048
     Dates: start: 20081117, end: 20081120
  3. SEROQUEL [Suspect]
     Route: 048
     Dates: start: 20081121, end: 20081124
  4. SEROQUEL [Suspect]
     Route: 048
     Dates: start: 20081121, end: 20081124
  5. DEPAS [Suspect]
     Indication: RESTLESSNESS
     Route: 048
     Dates: start: 20081107, end: 20081116
  6. RISPERDAL [Suspect]
     Indication: RESTLESSNESS
     Route: 048
     Dates: start: 20081107, end: 20081116
  7. RISPERDAL [Suspect]
     Route: 048
     Dates: start: 20081117, end: 20081124
  8. DAIKENTYUTO [Suspect]
     Indication: INTESTINAL OBSTRUCTION
     Route: 048
     Dates: start: 20081031, end: 20081124
  9. FOIPAN [Concomitant]
  10. GANATON [Concomitant]
  11. TAKEPRON [Concomitant]
  12. DIOVAN [Concomitant]
  13. GASMOTIN [Concomitant]
     Dates: start: 20081113
  14. LACTULOSE [Concomitant]
     Route: 048
     Dates: start: 20081021
  15. ZYPREXA [Concomitant]
     Dates: start: 20081125
  16. ROHYPNOL [Concomitant]
     Dates: start: 20081125
  17. LENDORMIN [Concomitant]
  18. RIZE [Concomitant]
     Dates: start: 20081125
  19. ADALAT [Concomitant]
  20. NOCBIN [Concomitant]
  21. STRONGER NEO-MINOPHAGEN [Concomitant]
     Dates: start: 20081024
  22. LEPETAN [Concomitant]
     Dates: start: 20081027
  23. GASTER [Concomitant]
     Dates: start: 20081024, end: 20081025
  24. SULPERAZON [Concomitant]
     Dates: start: 20081024, end: 20081027
  25. MIRACLID [Concomitant]
     Dates: start: 20081025, end: 20081027
  26. ALBUMIN (HUMAN) [Concomitant]
     Dates: start: 20081025, end: 20081027
  27. PANTOL [Concomitant]
     Dates: start: 20081027, end: 20081030
  28. RHYTHMY [Concomitant]
     Dates: start: 20081107
  29. GLYCYRON [Concomitant]
     Dates: start: 20081110, end: 20081111

REACTIONS (1)
  - LIVER DISORDER [None]
